FAERS Safety Report 18151581 (Version 1)
Quarter: 2020Q3

REPORT INFORMATION
  Report Type: Report from Study
  Country: BR (occurrence: BR)
  Receive Date: 20200814
  Receipt Date: 20200814
  Transmission Date: 20201103
  Serious: Yes (Hospitalization, Other)
  Sender: FDA-Public Use
  Company Number: BR-JNJFOC-20200504325

PATIENT
  Age: 39 Year
  Sex: Female

DRUGS (12)
  1. LEFLUNOMIDE. [Concomitant]
     Active Substance: LEFLUNOMIDE
  2. CHLOROQUINE. [Concomitant]
     Active Substance: CHLOROQUINE
  3. TRIMEBUTINE [Concomitant]
     Active Substance: TRIMEBUTINE
  4. SIMPONI [Suspect]
     Active Substance: GOLIMUMAB
     Indication: RHEUMATOID ARTHRITIS
     Route: 058
     Dates: start: 20200305
  5. PREDNISONE. [Concomitant]
     Active Substance: PREDNISONE
  6. PREGABALINE [Concomitant]
     Active Substance: PREGABALIN
  7. METHOTREXATE. [Concomitant]
     Active Substance: METHOTREXATE
  8. SINVASTATINA [Concomitant]
     Active Substance: SIMVASTATIN
  9. CLONAZEPAM. [Concomitant]
     Active Substance: CLONAZEPAM
  10. PROPRANOLOL [Concomitant]
     Active Substance: PROPRANOLOL HYDROCHLORIDE
  11. MEPRAZOL [Concomitant]
  12. DULOXETINE. [Concomitant]
     Active Substance: DULOXETINE

REACTIONS (7)
  - Facial paralysis [Not Recovered/Not Resolved]
  - Hypoaesthesia [Not Recovered/Not Resolved]
  - Hemiparesis [Not Recovered/Not Resolved]
  - COVID-19 [Unknown]
  - Headache [Not Recovered/Not Resolved]
  - Blood pressure increased [Not Recovered/Not Resolved]
  - Cystitis interstitial [Unknown]

NARRATIVE: CASE EVENT DATE: 2020
